FAERS Safety Report 8359809-4 (Version None)
Quarter: 2012Q2

REPORT INFORMATION
  Report Type: 
  Country: None (occurrence: None)
  Receive Date: 20120515
  Receipt Date: 20120504
  Transmission Date: 20120825
  Serious: Yes (Other)
  Sender: FDA-Public Use
  Company Number: PHHY2012IT031746

PATIENT
  Sex: Male

DRUGS (4)
  1. GLEEVEC [Suspect]
     Indication: CHRONIC MYELOID LEUKAEMIA
     Dosage: 300 MG, UNK
     Route: 048
     Dates: start: 20111120, end: 20111222
  2. VALSARTAN  AND HYDROCHLOROTHIAZIDE [Concomitant]
     Dosage: 1 POSOLOGY UNIT
     Route: 048
  3. GLUCOPHAGE [Concomitant]
     Dosage: 1000 MG, 2 POSOLOGIC UNITS
  4. GLEEVEC [Suspect]
     Dosage: 300 MG, UNK
     Route: 048
     Dates: start: 20120110, end: 20120224

REACTIONS (3)
  - CARBOHYDRATE ANTIGEN 19-9 INCREASED [None]
  - AMYLASE INCREASED [None]
  - LIPASE INCREASED [None]
